FAERS Safety Report 8122215-1 (Version None)
Quarter: 2012Q1

REPORT INFORMATION
  Report Type: 
  Country: None (occurrence: None)
  Receive Date: 20120208
  Receipt Date: 20120124
  Transmission Date: 20120608
  Serious: Yes (Life-Threatening, Hospitalization, Other)
  Sender: FDA-Public Use
  Company Number: US-ROCHE-1018534

PATIENT
  Sex: Female
  Weight: 63.106 kg

DRUGS (11)
  1. AZATHIOPRINE [Concomitant]
     Dosage: 2 TABLETS EVERY DAY
     Route: 048
  2. ACTEMRA [Suspect]
     Dosage: DOSE - 8
     Dates: start: 20111125
  3. BACTRIM DS [Concomitant]
     Route: 048
  4. TRAZODONE HCL [Concomitant]
     Indication: INSOMNIA
     Route: 048
     Dates: start: 20110524
  5. ACTEMRA [Suspect]
     Indication: RHEUMATOID ARTHRITIS
     Dosage: DOSE - 8
     Route: 042
     Dates: start: 20111111, end: 20111125
  6. TRAMADOL HCL [Concomitant]
     Dosage: 1-2 TABLETS EVERY 6 HOURS AS NEEDED
     Route: 048
  7. INSULIN S [Concomitant]
  8. LISINOPRIL [Concomitant]
     Indication: HYPERTENSION
     Dates: start: 20120106
  9. PREDNISOLONE [Concomitant]
     Indication: RHEUMATOID ARTHRITIS
  10. METHYLPREDNISOLONE [Concomitant]
     Dosage: 2 TAB 4 TIME/DAY FOR 1 WEEK, THEN 1 TAB 4 TIME/DAY FOR 1 WEEK, THEN 1 TAB DAILY FOR 1 WEEK
     Route: 048
  11. ATENOLOL [Concomitant]
     Dosage: EVERY DAY
     Route: 048

REACTIONS (10)
  - OEDEMA PERIPHERAL [None]
  - MUSCLE HAEMORRHAGE [None]
  - HEPATIC STEATOSIS [None]
  - HEPATIC FIBROSIS [None]
  - HAEMATOMA [None]
  - SARCOMA [None]
  - CARCINOEMBRYONIC ANTIGEN INCREASED [None]
  - ACTIVATED PARTIAL THROMBOPLASTIN TIME SHORTENED [None]
  - PAIN IN EXTREMITY [None]
  - BLOOD GLUCOSE INCREASED [None]
